FAERS Safety Report 6468760-6 (Version None)
Quarter: 2009Q4

REPORT INFORMATION
  Report Type: 
  Country: None (occurrence: None)
  Receive Date: 20091203
  Receipt Date: 20091117
  Transmission Date: 20100525
  Serious: No
  Sender: FDA-Public Use
  Company Number: US-BAYER-200941393NA

PATIENT
  Sex: Female
  Weight: 68 kg

DRUGS (7)
  1. MAGNEVIST [Suspect]
     Indication: PAIN
     Dosage: AS USED: 14 ML
     Route: 058
     Dates: start: 20091117, end: 20091117
  2. ADDEROL [Concomitant]
  3. CYMBALTA [Concomitant]
  4. PANO [Concomitant]
  5. TRAZALONE [Concomitant]
  6. CARBIDOPA AND LEVODOPA [Concomitant]
  7. NEURONTINE [Concomitant]

REACTIONS (1)
  - URTICARIA [None]
